FAERS Safety Report 13137216 (Version 1)
Quarter: 2017Q1

REPORT INFORMATION
  Report Type: Spontaneous
  Country: US (occurrence: US)
  Receive Date: 20170123
  Receipt Date: 20170123
  Transmission Date: 20170428
  Serious: Yes (Other)
  Sender: FDA-Public Use
  Company Number: US-PROCTER+GAMBLE-GS17004348

PATIENT
  Sex: Male

DRUGS (2)
  1. WINE [Suspect]
     Active Substance: WINE
  2. VICKS NYQUIL COLD AND FLU NIGHTTIME RELIEF [Suspect]
     Active Substance: ACETAMINOPHEN\DEXTROMETHORPHAN HYDROBROMIDE\DOXYLAMINE SUCCINATE
     Dosage: 1 DOSE AT 7PM, 1 DOSE AT 9PM, 2 DOSES AT 11PM (ON SAME NIGHT)
     Route: 048
     Dates: start: 201611

REACTIONS (12)
  - Product use issue [Unknown]
  - Alcohol withdrawal syndrome [Recovered/Resolved]
  - Insomnia [Recovered/Resolved]
  - Drug ineffective [Unknown]
  - Condition aggravated [Unknown]
  - Seizure like phenomena [Recovered/Resolved]
  - Intentional product misuse [Recovered/Resolved]
  - Hyperhidrosis [Recovered/Resolved]
  - Chills [Recovered/Resolved]
  - Memory impairment [Unknown]
  - Hallucination [Recovered/Resolved]
  - Tremor [Recovered/Resolved]

NARRATIVE: CASE EVENT DATE: 201611
